FAERS Safety Report 23020446 (Version 1)
Quarter: 2023Q4

REPORT INFORMATION
  Report Type: Other
  Country: None (occurrence: US)
  Receive Date: 20231003
  Receipt Date: 20231003
  Transmission Date: 20240109
  Serious: Yes (Hospitalization, Other)
  Sender: FDA-Public Use
  Company Number: US-Marksans Pharma Limited-2146571

PATIENT
  Age: 44 Year
  Sex: Female

DRUGS (8)
  1. GABAPENTIN [Suspect]
     Active Substance: GABAPENTIN
     Indication: Stenosis
     Route: 048
  2. POLYETHYLENE GLYCOL [Concomitant]
     Active Substance: POLYETHYLENE GLYCOL
     Route: 048
  3. HYDROCODONE [Concomitant]
     Active Substance: HYDROCODONE
     Route: 048
  4. ACETAMINOPHEN [Concomitant]
     Active Substance: ACETAMINOPHEN
     Route: 048
  5. DOCUSATE CALCIUM [Concomitant]
     Active Substance: DOCUSATE CALCIUM
     Route: 048
  6. ONDANSETRON [Concomitant]
     Active Substance: ONDANSETRON
     Route: 048
  7. CYCLOBENZAPRINE [Concomitant]
     Active Substance: CYCLOBENZAPRINE
     Route: 048
  8. DIAZEPAM [Concomitant]
     Active Substance: DIAZEPAM
     Route: 048

REACTIONS (10)
  - Cardiomyopathy [Recovered/Resolved]
  - Cardiomegaly [Recovered/Resolved]
  - Anxiety [Unknown]
  - Back pain [Unknown]
  - Left ventricular hypertrophy [Recovered/Resolved]
  - Right ventricular dysfunction [Recovered/Resolved]
  - Tricuspid valve disease [Recovered/Resolved]
  - Pulmonary hypertension [Recovered/Resolved]
  - Hypotension [Recovered/Resolved]
  - Off label use [Unknown]
